FAERS Safety Report 4977413-2 (Version None)
Quarter: 2006Q2

REPORT INFORMATION
  Report Type: 
  Country: None (occurrence: None)
  Receive Date: 20060412
  Receipt Date: 20060407
  Transmission Date: 20061013
  Serious: Yes (Other)
  Sender: FDA-Public Use
  Company Number: HQWYE727310APR06

PATIENT
  Age: 25 Year
  Sex: Female

DRUGS (7)
  1. LEVONORGESTREL + ETHINYL ESTRADIOL [Suspect]
     Indication: MENSTRUATION IRREGULAR
     Dosage: SEE IMAGE
     Route: 048
     Dates: start: 20050901, end: 20051001
  2. LEVONORGESTREL + ETHINYL ESTRADIOL [Suspect]
     Indication: MENSTRUATION IRREGULAR
     Dosage: SEE IMAGE
     Route: 048
     Dates: start: 20051101
  3. OVRAL [Suspect]
     Indication: MENSTRUATION IRREGULAR
     Dosage: QID X 3 DAYS, BID X 3 DAYS, OD THEREAFTER
     Route: 048
     Dates: start: 20051001, end: 20051001
  4. METFORMIN [Concomitant]
  5. XENICAL [Concomitant]
  6. IBUPROFEN [Concomitant]
  7. GRAVOL TAB [Concomitant]

REACTIONS (5)
  - BLINDNESS UNILATERAL [None]
  - CONDITION AGGRAVATED [None]
  - MIGRAINE [None]
  - OEDEMA PERIPHERAL [None]
  - PAIN IN EXTREMITY [None]
